FAERS Safety Report 9238757 (Version 1)
Quarter: 2013Q2

REPORT INFORMATION
  Report Type: Spontaneous
  Country: US (occurrence: None)
  Receive Date: 20130417
  Receipt Date: 20130417
  Transmission Date: 20140414
  Serious: Yes (Disabling)
  Sender: FDA-Public Use
  Company Number: None

PATIENT
  Age: 51 Year
  Sex: Female
  Weight: 49.9 kg

DRUGS (1)
  1. VIVELLE [Suspect]
     Indication: HOT FLUSH
     Dosage: .025MG  2X WK  ABDOMEN
     Dates: start: 201202, end: 201211

REACTIONS (3)
  - Endometriosis [None]
  - Pain [None]
  - Bladder disorder [None]
